FAERS Safety Report 7275710-1 (Version None)
Quarter: 2011Q1

REPORT INFORMATION
  Report Type: 
  Country: None (occurrence: None)
  Receive Date: 20110202
  Receipt Date: 20110202
  Transmission Date: 20110831
  Serious: Yes (Death)
  Sender: FDA-Public Use
  Company Number: None

PATIENT
  Age: 71 Year
  Sex: Female
  Weight: 47.6277 kg

DRUGS (5)
  1. BETIMOL [Concomitant]
  2. ERLOTINIB [Suspect]
     Indication: NON-SMALL CELL LUNG CANCER
     Dosage: 150MG DAILY ORAL
     Route: 048
     Dates: start: 20101203, end: 20110113
  3. PAZOPANIB/PLACEBO [Suspect]
     Indication: NON-SMALL CELL LUNG CANCER
     Dosage: 600MG DAILY ORAL
     Route: 048
     Dates: start: 20101203, end: 20110113
  4. ADVIL [Concomitant]
  5. AMBIEN [Concomitant]

REACTIONS (2)
  - SUDDEN DEATH [None]
  - FALL [None]
